FAERS Safety Report 13078941 (Version 7)
Quarter: 2017Q2

REPORT INFORMATION
  Report Type: Report from Study
  Country: CA (occurrence: CA)
  Receive Date: 20170102
  Receipt Date: 20170512
  Transmission Date: 20170830
  Serious: Yes (Hospitalization, Other)
  Sender: FDA-Public Use
  Company Number: PHHY2016CA175362

PATIENT
  Age: 34 Year
  Sex: Female

DRUGS (6)
  1. COSENTYX [Suspect]
     Active Substance: SECUKINUMAB
     Dosage: 150 MG, QW
     Route: 058
     Dates: start: 20161209
  2. COSENTYX [Suspect]
     Active Substance: SECUKINUMAB
     Indication: PSORIATIC ARTHROPATHY
     Dosage: 150 MG, QW
     Route: 058
     Dates: start: 20161202
  3. COSENTYX [Suspect]
     Active Substance: SECUKINUMAB
     Dosage: 300 MG, QMO
     Route: 058
     Dates: start: 20170330, end: 20170330
  4. INFLECTRA [Concomitant]
     Active Substance: INFLIXIMAB-DYYB
     Indication: PRODUCT USED FOR UNKNOWN INDICATION
     Route: 065
  5. COSENTYX [Suspect]
     Active Substance: SECUKINUMAB
     Dosage: 300 MG, QW
     Route: 058
     Dates: start: 20170302, end: 20170323
  6. CORTISONE [Suspect]
     Active Substance: CORTISONE\HYDROCORTISONE
     Indication: PRODUCT USED FOR UNKNOWN INDICATION
     Route: 065

REACTIONS (23)
  - Malaise [Unknown]
  - Oropharyngeal pain [Unknown]
  - Bronchospasm [Unknown]
  - Vomiting [Unknown]
  - Joint swelling [Unknown]
  - Streptococcal infection [Unknown]
  - Dysphonia [Unknown]
  - Lung infection [Unknown]
  - Sputum discoloured [Unknown]
  - Painful respiration [Unknown]
  - Mucosal discolouration [Unknown]
  - Oral candidiasis [Unknown]
  - Renal failure [Unknown]
  - Sinusitis bacterial [Unknown]
  - Dyspnoea [Unknown]
  - Insomnia [Unknown]
  - Pain [Unknown]
  - Diarrhoea [Unknown]
  - Viral upper respiratory tract infection [Unknown]
  - Bronchitis bacterial [Unknown]
  - Pyrexia [Unknown]
  - Swelling [Unknown]
  - Asthenia [Unknown]

NARRATIVE: CASE EVENT DATE: 20161209
